FAERS Safety Report 9664034 (Version 1)
Quarter: 2013Q4

REPORT INFORMATION
  Report Type: Spontaneous
  Country: US (occurrence: US)
  Receive Date: 20131101
  Receipt Date: 20131101
  Transmission Date: 20140711
  Serious: Yes (Death)
  Sender: FDA-Public Use
  Company Number: US-PFIZER INC-2013309645

PATIENT
  Sex: Male

DRUGS (1)
  1. XALKORI [Suspect]
     Indication: BRAIN CANCER METASTATIC
     Dosage: 250 MG, 2X/DAY (BID)
     Route: 048
     Dates: start: 20130717

REACTIONS (2)
  - Death [Fatal]
  - Off label use [Unknown]
